FAERS Safety Report 10101714 (Version 1)
Quarter: 2014Q2

REPORT INFORMATION
  Report Type: Spontaneous
  Country: US (occurrence: None)
  Receive Date: 20140418
  Receipt Date: 20140418
  Transmission Date: 20141212
  Serious: Yes (Other)
  Sender: FDA-Public Use
  Company Number: AUR-APL-2014-01709

PATIENT
  Age: 50 Year
  Sex: Female

DRUGS (2)
  1. LEVOFLOXACIN (LEVOFLOXACIN) [Suspect]
     Indication: PNEUMONIA
     Dosage: 1 D
     Dates: start: 20131227, end: 20140102
  2. ESTRADIOL (ESTRADIOL) (GEL) [Concomitant]

REACTIONS (4)
  - Tendonitis [None]
  - Gait disturbance [None]
  - Arthralgia [None]
  - Joint swelling [None]
